FAERS Safety Report 8843528 (Version 1)
Quarter: 2012Q4

REPORT INFORMATION
  Report Type: 
  Country: IT (occurrence: IT)
  Receive Date: 20121016
  Receipt Date: 20121016
  Transmission Date: 20130627
  Serious: Yes (Hospitalization)
  Sender: FDA-Public Use
  Company Number: IT-WATSON-2012-17161

PATIENT
  Age: 78 Year
  Sex: Female

DRUGS (11)
  1. DOXAZOSIN MESYLATE [Suspect]
     Indication: HYPERTENSION
     Dosage: 4 mg, daily
     Route: 048
     Dates: start: 20080101, end: 20120905
  2. ALDACTONE                          /00006201/ [Suspect]
     Indication: HYPERTENSION
     Dosage: 100 mg, daily
     Route: 048
  3. TENORMIN [Suspect]
     Indication: HYPERTENSION
     Dosage: 0.25 tablet per day
     Route: 065
     Dates: start: 20120906
  4. TENORMIN [Suspect]
     Dosage: 0.5  tablet
     Route: 065
     Dates: start: 20120905, end: 20120906
  5. TENORMIN [Suspect]
     Dosage: 100 mg, daily
     Route: 048
     Dates: start: 20040101, end: 20120905
  6. LASIX                              /00032601/ [Suspect]
     Indication: HYPERTENSION
     Dosage: 50 mg daily (2 DF daily)
     Route: 048
     Dates: start: 20080101, end: 20120906
  7. OLMESAR-A [Suspect]
     Indication: HYPERTENSION
     Dosage: DF (5mg/20mg), daily;
     Route: 048
     Dates: start: 20120228, end: 20120906
  8. SIMVASTATINE [Concomitant]
     Indication: PRODUCT USED FOR UNKNOWN INDICATION
     Dosage: UNK
     Route: 065
  9. CALCIUM [Concomitant]
     Indication: PRODUCT USED FOR UNKNOWN INDICATION
     Route: 065
  10. ASA [Concomitant]
     Indication: PRODUCT USED FOR UNKNOWN INDICATION
     Dosage: UNK
     Route: 065
  11. FOSAVANCE [Concomitant]
     Indication: PRODUCT USED FOR UNKNOWN INDICATION
     Dosage: UNK
     Route: 065

REACTIONS (4)
  - Blood potassium increased [Unknown]
  - Blood creatinine increased [Unknown]
  - Blood urea increased [Unknown]
  - Hypotension [Recovered/Resolved]
